FAERS Safety Report 16023609 (Version 1)
Quarter: 2019Q1

REPORT INFORMATION
  Report Type: Spontaneous
  Country: BR (occurrence: BR)
  Receive Date: 20190301
  Receipt Date: 20190301
  Transmission Date: 20190418
  Serious: Yes (Hospitalization, Other)
  Sender: FDA-Public Use
  Company Number: BR-BAYER-2019-018207

PATIENT
  Age: 29 Year
  Sex: Female

DRUGS (2)
  1. YASMIN [Suspect]
     Active Substance: DROSPIRENONE\ETHINYL ESTRADIOL
     Indication: MENSTRUAL CYCLE MANAGEMENT
  2. YASMIN [Suspect]
     Active Substance: DROSPIRENONE\ETHINYL ESTRADIOL
     Indication: CONTRACEPTION
     Dosage: UNK
     Route: 048
     Dates: start: 20140520, end: 20181217

REACTIONS (10)
  - Seizure [None]
  - Cerebral artery embolism [Recovering/Resolving]
  - Metrorrhagia [None]
  - Ear pain [Recovering/Resolving]
  - Cerebral venous thrombosis [Recovering/Resolving]
  - Superior sagittal sinus thrombosis [Recovering/Resolving]
  - Confusional state [Recovering/Resolving]
  - Transverse sinus thrombosis [Recovering/Resolving]
  - Headache [Recovering/Resolving]
  - Neck pain [Recovering/Resolving]

NARRATIVE: CASE EVENT DATE: 201812
